FAERS Safety Report 6267550-7 (Version None)
Quarter: 2009Q3

REPORT INFORMATION
  Report Type: 
  Country: None (occurrence: None)
  Receive Date: 20090714
  Receipt Date: 20090710
  Transmission Date: 20100115
  Serious: Yes (Death, Other)
  Sender: FDA-Public Use
  Company Number: PHHY2009JP28472

PATIENT
  Sex: Male
  Weight: 43 kg

DRUGS (10)
  1. SIMULECT [Suspect]
     Indication: RENAL TRANSPLANT
     Dosage: 20 MG DAILY
     Route: 042
     Dates: start: 20040903, end: 20040903
  2. SIMULECT [Suspect]
     Dosage: 20 MG DAILY
     Route: 042
     Dates: start: 20040907, end: 20040907
  3. SANDIMMUNE [Suspect]
     Indication: RENAL TRANSPLANT
     Dosage: UNK
     Route: 042
     Dates: start: 20040903, end: 20041205
  4. NEORAL [Suspect]
     Indication: RENAL TRANSPLANT
     Dosage: UNK
     Route: 048
     Dates: start: 20040903, end: 20041205
  5. NEORAL [Suspect]
     Dosage: 150 MG DAILY
     Route: 048
     Dates: start: 20041206, end: 20060205
  6. PREDNISOLONE [Suspect]
     Indication: RENAL TRANSPLANT
     Dosage: UNK
     Route: 048
     Dates: start: 20040903, end: 20060205
  7. PREDNISOLONE [Suspect]
     Dosage: UNK
     Route: 042
     Dates: start: 20040903, end: 20060205
  8. CELLCEPT [Suspect]
     Indication: RENAL TRANSPLANT
     Dosage: 2000 MG DAILY
     Route: 048
     Dates: start: 20040906, end: 20041009
  9. CELLCEPT [Suspect]
     Dosage: 1000 MG DAILY
     Route: 048
     Dates: start: 20041010, end: 20060125
  10. GLOBULIN [Concomitant]

REACTIONS (5)
  - ABSCESS DRAINAGE [None]
  - ARTHRITIS BACTERIAL [None]
  - CEREBRAL INFARCTION [None]
  - DEPRESSED LEVEL OF CONSCIOUSNESS [None]
  - DISSEMINATED INTRAVASCULAR COAGULATION [None]
